FAERS Safety Report 7587224-X (Version None)
Quarter: 2011Q3

REPORT INFORMATION
  Report Type: 
  Country: None (occurrence: None)
  Receive Date: 20110701
  Receipt Date: 20110701
  Transmission Date: 20111222
  Serious: Yes (Death)
  Sender: FDA-Public Use
  Company Number: US-ABBOTT-11P-163-0721748-00

PATIENT
  Sex: Male
  Weight: 35.412 kg

DRUGS (6)
  1. LIPITOR [Concomitant]
     Indication: BLOOD CHOLESTEROL INCREASED
  2. PANTOPRAZOLE [Concomitant]
     Indication: PRODUCT USED FOR UNKNOWN INDICATION
  3. METOPROLOL TARTRATE [Concomitant]
     Indication: HYPERTENSION
  4. CASODEX [Concomitant]
     Indication: PROSTATE CANCER
  5. LUPRON DEPOT [Suspect]
     Indication: PROSTATE CANCER METASTATIC
     Dates: start: 20091228, end: 20101207
  6. ASPIRIN [Concomitant]
     Indication: CARDIOVASCULAR EVENT PROPHYLAXIS

REACTIONS (2)
  - SEPSIS [None]
  - INTESTINAL OBSTRUCTION [None]
